FAERS Safety Report 10958531 (Version 1)
Quarter: 2015Q1

REPORT INFORMATION
  Report Type: Spontaneous
  Country: US (occurrence: US)
  Receive Date: 20150326
  Receipt Date: 20150326
  Transmission Date: 20150721
  Serious: No
  Sender: FDA-Public Use
  Company Number: US-GLAXOSMITHKLINE-US2015039084

PATIENT
  Sex: Male

DRUGS (4)
  1. ASPIRIN (BABY) [Concomitant]
  2. FLOVENT DISKUS [Suspect]
     Active Substance: FLUTICASONE PROPIONATE
     Indication: OESOPHAGITIS
     Dosage: 4 PUFF(S), BID
     Route: 048
     Dates: start: 20150305
  3. TAMSULOSIN [Concomitant]
     Active Substance: TAMSULOSIN
  4. FOLBIC [Concomitant]
     Active Substance: CYANOCOBALAMIN\FOLIC ACID\PYRIDOXINE

REACTIONS (3)
  - Off label use [Unknown]
  - Drug administration error [Unknown]
  - Device use error [Unknown]
